FAERS Safety Report 13737613 (Version 1)
Quarter: 2017Q3

REPORT INFORMATION
  Report Type: Spontaneous
  Country: US (occurrence: US)
  Receive Date: 20170710
  Receipt Date: 20170710
  Transmission Date: 20171127
  Serious: Yes (Other)
  Sender: FDA-Public Use
  Company Number: US-SAOL THERAPEUTICS-2016SAO00920

PATIENT
  Age: 49 Year
  Sex: Female

DRUGS (9)
  1. MORPHINE [Suspect]
     Active Substance: MORPHINE
     Dosage: 2.6 MG, \DAY
  2. BUPIVACAINE. [Suspect]
     Active Substance: BUPIVACAINE
     Dosage: UNK
  3. MORPHINE [Suspect]
     Active Substance: MORPHINE
     Dosage: UNK
     Route: 037
  4. LIORESAL [Suspect]
     Active Substance: BACLOFEN
     Indication: MULTIPLE SCLEROSIS
     Dosage: 6.1 ?G, \DAY
     Route: 037
  5. MORPHINE [Suspect]
     Active Substance: MORPHINE
     Dosage: 0.061 MG, \DAY
     Route: 037
  6. BUPIVACAINE. [Suspect]
     Active Substance: BUPIVACAINE
     Dosage: 0.061 MG, \DAY
     Route: 037
  7. LIORESAL [Suspect]
     Active Substance: BACLOFEN
     Dosage: 264 ?G, \DAY
  8. BUPIVACAINE. [Suspect]
     Active Substance: BUPIVACAINE
     Dosage: 2.6 MG, \DAY
     Route: 037
  9. LIORESAL [Suspect]
     Active Substance: BACLOFEN
     Indication: MUSCLE SPASTICITY
     Dosage: 265 ?G, \DAY
     Route: 037

REACTIONS (8)
  - Pain [Unknown]
  - Device battery issue [Unknown]
  - Implant site discharge [Recovered/Resolved]
  - Respiratory tract infection [Not Recovered/Not Resolved]
  - Incision site erythema [Recovered/Resolved]
  - Scab [Not Recovered/Not Resolved]
  - Drug withdrawal syndrome [Unknown]
  - Diplopia [Unknown]

NARRATIVE: CASE EVENT DATE: 2016
